FAERS Safety Report 6356510-3 (Version None)
Quarter: 2009Q3

REPORT INFORMATION
  Report Type: 
  Country: None (occurrence: None)
  Receive Date: 20090915
  Receipt Date: 20090907
  Transmission Date: 20100115
  Serious: Yes (Death)
  Sender: FDA-Public Use
  Company Number: B0592484A

PATIENT

DRUGS (2)
  1. ALKERAN [Suspect]
     Indication: MULTIPLE MYELOMA
     Route: 048
  2. RANIMUSTINE [Concomitant]
     Route: 065

REACTIONS (1)
  - MYELODYSPLASTIC SYNDROME [None]
